FAERS Safety Report 13003676 (Version 5)
Quarter: 2020Q2

REPORT INFORMATION
  Report Type: Spontaneous
  Country: US (occurrence: US)
  Receive Date: 20161206
  Receipt Date: 20200514
  Transmission Date: 20200713
  Serious: Yes (Other)
  Sender: FDA-Public Use
  Company Number: US-PFIZER INC-2015308077

PATIENT
  Age: 63 Year
  Sex: Female

DRUGS (28)
  1. PREMARIN [Suspect]
     Active Substance: ESTROGENS, CONJUGATED
     Indication: HORMONE REPLACEMENT THERAPY
     Dosage: 0.9 MG, DAILY
     Route: 048
     Dates: start: 20060227
  2. HYPERSAL [Concomitant]
     Active Substance: SODIUM CHLORIDE
     Dosage: UNK, 3X/DAY
     Dates: start: 20160219
  3. IBUPROFEN. [Concomitant]
     Active Substance: IBUPROFEN
     Dosage: 800 MG, AS NEEDED
     Route: 048
     Dates: start: 20131024
  4. XOPENEX HFA [Concomitant]
     Active Substance: LEVALBUTEROL TARTRATE
     Dosage: 2 DF, AS NEEDED (45 MCG/ACT INHALATION AEROSOL INHALE 2 PUFFS EVERY 4-6 HOURS AS NEEDED)
     Dates: start: 20160826
  5. APEXICON E [Concomitant]
     Active Substance: DIFLORASONE DIACETATE
     Indication: PRURITUS
     Dosage: UNK, 1X/DAY
     Route: 061
     Dates: start: 20120314
  6. OXYCODONE AND ACETAMINOPHEN [Concomitant]
     Active Substance: ACETAMINOPHEN\OXYCODONE HYDROCHLORIDE
     Indication: PAIN
     Dosage: UNK, AS NEEDED (1-2 TABLETS EVERY 4-6 HOURS AS NEEDED)
     Route: 048
     Dates: start: 20100912
  7. PROAIR HFA [Concomitant]
     Active Substance: ALBUTEROL SULFATE
     Indication: BRONCHIECTASIS
     Dosage: UNK, AS NEEDED (108 (90 BASE) MCG/ACT) (INHALE 1-2 PUFFS EVERY 4-6 HOURS AS NEEDED)
     Dates: start: 20100326
  8. PROCTOSOL HC [Concomitant]
     Dosage: 1 DF, 3X/DAY
     Route: 054
     Dates: start: 20150822
  9. VITAMIN D3 [Concomitant]
     Active Substance: CHOLECALCIFEROL
     Dosage: UNK
  10. PREMARIN [Suspect]
     Active Substance: ESTROGENS, CONJUGATED
     Indication: HORMONE REPLACEMENT THERAPY
     Dosage: 0.625 MG, 1X/DAY
     Route: 048
     Dates: start: 2015
  11. ACYCLOVIR. [Concomitant]
     Active Substance: ACYCLOVIR
     Dosage: 400 MG, AS NEEDED (TAKE 1 TABLET 3 TIMES DAILY PRN FOR FIVE DAYS)
     Route: 048
     Dates: start: 20151216
  12. BENADRYL [Concomitant]
     Active Substance: DIPHENHYDRAMINE HYDROCHLORIDE
     Indication: HIATUS HERNIA
     Dosage: 25 MG, UNK
  13. ALBUTEROL SULFATE. [Concomitant]
     Active Substance: ALBUTEROL SULFATE
     Dosage: UNK
  14. FLUOROURACIL. [Concomitant]
     Active Substance: FLUOROURACIL
     Dosage: UNK, 2X/DAY (APPLY A THIN LAYER TO AFFECTED AREA(S) TWICE DAILY)
     Route: 061
     Dates: start: 20160628
  15. OMEPRAZOLE. [Concomitant]
     Active Substance: OMEPRAZOLE
     Dosage: 20 MG, 1X/DAY (EVERY MORNING BEFORE BREAKFAST)
     Route: 048
     Dates: start: 20141216
  16. LEVOTHYROXINE SODIUM. [Concomitant]
     Active Substance: LEVOTHYROXINE SODIUM
     Dosage: 88 UG, 1X/DAY
     Route: 048
     Dates: start: 20110823
  17. FLONASE [Concomitant]
     Active Substance: FLUTICASONE PROPIONATE
     Indication: BRONCHIECTASIS
     Dosage: UNK, DAILY (50 MCG/ACT NASAL SUSPENSION, 1-2 SPRAYS IN EACH NOSTRIL DAILY]
     Route: 045
     Dates: start: 20161107
  18. CLOBETASOL PROPIONATE. [Concomitant]
     Active Substance: CLOBETASOL PROPIONATE
     Indication: DERMATITIS CONTACT
     Dosage: UNK, 2X/DAY
     Route: 061
     Dates: start: 20141006
  19. TRIAMCINOLONE ACETONIDE. [Concomitant]
     Active Substance: TRIAMCINOLONE ACETONIDE
     Indication: DERMATITIS CONTACT
     Dosage: UNK, 2X/DAY
     Route: 061
     Dates: start: 20140107
  20. IBUPROFEN. [Concomitant]
     Active Substance: IBUPROFEN
     Dosage: UNK
  21. LEVOTHYROXINE SODIUM. [Concomitant]
     Active Substance: LEVOTHYROXINE SODIUM
     Dosage: UNK
  22. PREMARIN [Suspect]
     Active Substance: ESTROGENS, CONJUGATED
     Indication: HOT FLUSH
     Dosage: 0.625 MG, 1X/DAY
     Route: 048
     Dates: start: 2013
  23. ALBUTEROL SULFATE. [Concomitant]
     Active Substance: ALBUTEROL SULFATE
     Dosage: UNK UNK, AS NEEDED (2.5 MG/3ML) 0.083% USE ONE VIAL EVERY FOUR HOURS AS NEEDED VIA NEBULIZER
     Route: 055
     Dates: start: 20151012
  24. FLONASE [Concomitant]
     Active Substance: FLUTICASONE PROPIONATE
     Dosage: 2 DF, 1X/DAY (50 MCG/ACT NASAL SUSPENSION, USE 2 SPRAYS IN EACH NOSTRIL ONCE DAILY)
     Route: 045
     Dates: start: 20090312
  25. IMIQUIMOD. [Concomitant]
     Active Substance: IMIQUIMOD
     Dosage: UNK, 2X/DAY
     Route: 061
     Dates: start: 20160616
  26. VITAMIN D3 [Concomitant]
     Active Substance: CHOLECALCIFEROL
     Dosage: 2000 IU, UNK
     Route: 048
  27. FLONASE [Concomitant]
     Active Substance: FLUTICASONE PROPIONATE
     Dosage: UNK
  28. CLOBETASOL PROPIONATE. [Concomitant]
     Active Substance: CLOBETASOL PROPIONATE
     Indication: RASH

REACTIONS (5)
  - Incorrect dose administered [Recovered/Resolved]
  - Migraine [Unknown]
  - Product dispensing error [Unknown]
  - Mycobacterium avium complex infection [Unknown]
  - Headache [Recovered/Resolved]
